FAERS Safety Report 5677875-1 (Version None)
Quarter: 2008Q1

REPORT INFORMATION
  Report Type: 
  Country: None (occurrence: None)
  Receive Date: 20080319
  Receipt Date: 20080304
  Transmission Date: 20080703
  Serious: Yes (Hospitalization, Other)
  Sender: FDA-Public Use
  Company Number: 231170J08USA

PATIENT
  Age: 50 Year
  Sex: Female
  Weight: 90.7194 kg

DRUGS (10)
  1. REBIF [Suspect]
     Indication: MULTIPLE SCLEROSIS
     Dosage: 44 MCG, 3 IN 1 WEEKS, SUBCUTANEOUS
     Route: 058
     Dates: start: 20070402
  2. GLUCOPHAGE        (METFORMIN /0008271/) [Concomitant]
  3. LISINOPRIL [Concomitant]
  4. BACLOFEN [Concomitant]
  5. METOPROLOL TARTRATE [Concomitant]
  6. CALCITRIOL [Concomitant]
  7. LEXAPRO [Concomitant]
  8. THYROID TAB [Concomitant]
  9. OMEGA-3               (OMEGA-3 TRIGLYCERIDES) [Concomitant]
  10. VITAMIN B-12             (CYANOCOBALIN) (CYANOCOBALAMIN) [Concomitant]

REACTIONS (4)
  - ANAEMIA [None]
  - FALL [None]
  - GASTROINTESTINAL STROMAL TUMOUR [None]
  - METASTASES TO SPLEEN [None]
